FAERS Safety Report 16371127 (Version 1)
Quarter: 2019Q3

REPORT INFORMATION
  Report Type: Spontaneous
  Country: US (occurrence: US)
  Receive Date: 20190529
  Receipt Date: 20190529
  Transmission Date: 20191004
  Serious: No
  Sender: FDA-Public Use
  Company Number: None

PATIENT
  Age: 59 Year
  Sex: Male

DRUGS (1)
  1. LISINOPRIL. [Suspect]
     Active Substance: LISINOPRIL
     Route: 048
     Dates: start: 20190520, end: 20190529

REACTIONS (4)
  - Abdominal distension [None]
  - Headache [None]
  - Flushing [None]
  - Confusional state [None]

NARRATIVE: CASE EVENT DATE: 20190520
